FAERS Safety Report 25433110 (Version 2)
Quarter: 2025Q3

REPORT INFORMATION
  Report Type: Spontaneous
  Country: US (occurrence: US)
  Receive Date: 20250613
  Receipt Date: 20250915
  Transmission Date: 20251020
  Serious: No
  Sender: ALVOGEN
  Company Number: US-ALVOGEN-2025097849

PATIENT
  Sex: Male

DRUGS (3)
  1. LISDEXAMFETAMINE [Suspect]
     Active Substance: LISDEXAMFETAMINE
     Indication: Attention deficit hyperactivity disorder
     Dosage: REFILLED A COUPLE OF WEEKS AGO IN APR-2025, 30 MG ONCE A DAY
     Dates: start: 20250409
  2. ESTRADIOL VALERATE [Concomitant]
     Active Substance: ESTRADIOL VALERATE
     Indication: Hormone replacement therapy
     Dosage: AT A DOSE OF 0.15 MG ONCE A WEEK
     Route: 030
  3. SPIRONOLACTONE [Concomitant]
     Active Substance: SPIRONOLACTONE
     Indication: Hormone replacement therapy
     Dosage: 25 MG TWICE DAILY

REACTIONS (3)
  - Sleep disorder [Unknown]
  - Product physical issue [Unknown]
  - Drug effect less than expected [Unknown]

NARRATIVE: CASE EVENT DATE: 20250401
